FAERS Safety Report 6550907-4 (Version None)
Quarter: 2010Q1

REPORT INFORMATION
  Report Type: 
  Country: None (occurrence: None)
  Receive Date: 20100125
  Receipt Date: 20100120
  Transmission Date: 20100710
  Serious: Yes (Death)
  Sender: FDA-Public Use
  Company Number: PHHY2010CA03478

PATIENT
  Age: 53 Year
  Sex: Male

DRUGS (6)
  1. CLOZAPINE [Suspect]
     Indication: SCHIZOAFFECTIVE DISORDER
  2. CHLORPROMAZINE [Suspect]
     Indication: SCHIZOAFFECTIVE DISORDER
  3. LEVOMEPROMAZINE [Suspect]
     Indication: SCHIZOAFFECTIVE DISORDER
  4. PROMAZINE HYDROCHLORIDE [Suspect]
     Indication: SCHIZOAFFECTIVE DISORDER
  5. FLUPHENAZINE [Suspect]
     Indication: SCHIZOAFFECTIVE DISORDER
  6. HALOPERIDOL [Suspect]
     Indication: SCHIZOAFFECTIVE DISORDER

REACTIONS (1)
  - MYOCARDIAL INFARCTION [None]
